FAERS Safety Report 10936314 (Version 1)
Quarter: 2015Q1

REPORT INFORMATION
  Report Type: Spontaneous
  Country: US (occurrence: None)
  Receive Date: 20150320
  Receipt Date: 20150320
  Transmission Date: 20150721
  Serious: Yes (Death, Hospitalization, Disabling)
  Sender: FDA-Public Use
  Company Number: None

PATIENT
  Age: 60 Year
  Sex: Female
  Weight: 83.2 kg

DRUGS (1)
  1. K2 [Suspect]
     Active Substance: JWH-018
     Indication: DRUG ABUSE
     Dates: start: 20150306, end: 20150306

REACTIONS (2)
  - Liver function test abnormal [None]
  - Seizure [None]

NARRATIVE: CASE EVENT DATE: 20150306
